FAERS Safety Report 5199766-5 (Version None)
Quarter: 2007Q1

REPORT INFORMATION
  Report Type: 
  Country: None (occurrence: None)
  Receive Date: 20070105
  Receipt Date: 20060515
  Transmission Date: 20070707
  Serious: No
  Sender: FDA-Public Use
  Company Number: US-GLAXOSMITHKLINE-A0605611A

PATIENT
  Sex: Female

DRUGS (3)
  1. TAGAMET [Suspect]
     Dosage: 400MG PER DAY
     Route: 048
     Dates: start: 20050101
  2. PRILOSEC [Concomitant]
  3. TUMS [Concomitant]

REACTIONS (1)
  - DRUG INEFFECTIVE [None]
